APPROVED DRUG PRODUCT: CYCLOBENZAPRINE HYDROCHLORIDE
Active Ingredient: CYCLOBENZAPRINE HYDROCHLORIDE
Strength: 5MG
Dosage Form/Route: TABLET;ORAL
Application: A218936 | Product #001 | TE Code: AB
Applicant: RISING PHARMA HOLDINGS INC
Approved: Sep 12, 2024 | RLD: No | RS: No | Type: RX